FAERS Safety Report 17134714 (Version 1)
Quarter: 2019Q4

REPORT INFORMATION
  Report Type: Report from Study
  Country: DE (occurrence: DE)
  Receive Date: 20191210
  Receipt Date: 20191210
  Transmission Date: 20200122
  Serious: Yes (Other)
  Sender: FDA-Public Use
  Company Number: PHHY2016DE086284

PATIENT
  Age: 22 Year
  Sex: Male
  Weight: 71 kg

DRUGS (1)
  1. GILENYA [Suspect]
     Active Substance: FINGOLIMOD HYDROCHLORIDE
     Indication: MULTIPLE SCLEROSIS
     Dosage: 0.5 MG, QD
     Route: 048
     Dates: start: 20140925

REACTIONS (9)
  - Alanine aminotransferase increased [Unknown]
  - Hyperlipidaemia [Not Recovered/Not Resolved]
  - Vitamin D deficiency [Recovered/Resolved]
  - Asthma [Unknown]
  - Hypercholesterolaemia [Unknown]
  - Lymphocyte count decreased [Unknown]
  - Muscle spasticity [Recovered/Resolved]
  - Gamma-glutamyltransferase increased [Unknown]
  - Ligament rupture [Unknown]

NARRATIVE: CASE EVENT DATE: 201501
